FAERS Safety Report 25699963 (Version 1)
Quarter: 2025Q3

REPORT INFORMATION
  Report Type: Spontaneous
  Country: CN (occurrence: CN)
  Receive Date: 20250819
  Receipt Date: 20250819
  Transmission Date: 20251020
  Serious: Yes (Life-Threatening)
  Sender: ROCHE
  Company Number: CN-002147023-NVSC2025CN128469

PATIENT
  Age: 27 Year
  Sex: Male

DRUGS (1)
  1. OMALIZUMAB [Suspect]
     Active Substance: OMALIZUMAB
     Indication: Urticaria chronic
     Route: 065

REACTIONS (8)
  - Purpura fulminans [Unknown]
  - Ecchymosis [Unknown]
  - Skin tightness [Unknown]
  - Blister [Unknown]
  - Hepatic function abnormal [Not Recovered/Not Resolved]
  - Back pain [Unknown]
  - Chest pain [Unknown]
  - Pain [Unknown]
